FAERS Safety Report 5841241-6 (Version None)
Quarter: 2008Q3

REPORT INFORMATION
  Report Type: 
  Country: None (occurrence: None)
  Receive Date: 20080731
  Receipt Date: 20080630
  Transmission Date: 20090109
  Serious: No
  Sender: FDA-Public Use
  Company Number: US200806003519

PATIENT
  Age: 79 Year
  Sex: Female
  Weight: 99.8 kg

DRUGS (4)
  1. BYETTA [Suspect]
     Indication: TYPE 2 DIABETES MELLITUS
     Dosage: 5 UG, 2/D, SUBCUTANEOUS
     Route: 058
     Dates: start: 20080603
  2. GLUCOTROL [Concomitant]
  3. ASPIRIN [Concomitant]
  4. PLAVIX [Concomitant]

REACTIONS (5)
  - CONTUSION [None]
  - EARLY MORNING AWAKENING [None]
  - INJECTION SITE HAEMATOMA [None]
  - NAUSEA [None]
  - WEIGHT DECREASED [None]
